FAERS Safety Report 21157071 (Version 1)
Quarter: 2022Q3

REPORT INFORMATION
  Report Type: Spontaneous
  Country: US (occurrence: US)
  Receive Date: 20220801
  Receipt Date: 20220801
  Transmission Date: 20221026
  Serious: Yes (Hospitalization, Disabling, Other)
  Sender: FDA-Public Use
  Company Number: US-SA-2022SA299357

PATIENT
  Age: 59 Year
  Sex: Male
  Weight: 78.4 kg

DRUGS (18)
  1. DOCETAXEL [Suspect]
     Active Substance: DOCETAXEL
     Indication: Prostate cancer metastatic
     Dosage: 125 MG, Q3W
     Route: 042
     Dates: start: 20220202, end: 20220315
  2. CARBOPLATIN [Suspect]
     Active Substance: CARBOPLATIN
     Indication: Prostate cancer metastatic
     Dosage: 290 MG, Q3W
     Route: 042
     Dates: start: 20220202, end: 20220315
  3. LOSARTAN [Concomitant]
     Active Substance: LOSARTAN
     Indication: Hypertension
     Dosage: UNK
     Dates: start: 202103
  4. VENLAFAXINE [Concomitant]
     Active Substance: VENLAFAXINE HYDROCHLORIDE
     Indication: Hot flush
     Dosage: UNK
     Dates: start: 202008
  5. DOCUSATE SODIUM [Concomitant]
     Active Substance: DOCUSATE SODIUM
     Indication: Constipation
     Dosage: UNK
     Dates: start: 202106, end: 202202
  6. PREDNISONE [Concomitant]
     Active Substance: PREDNISONE
     Dosage: UNK
     Dates: start: 20220202, end: 20220202
  7. APREPITANT [Concomitant]
     Active Substance: APREPITANT
     Dosage: UNK
     Dates: start: 20220202, end: 20220223
  8. DEXAMETHASONE [Concomitant]
     Active Substance: DEXAMETHASONE
     Dosage: UNK
     Dates: start: 20220202, end: 20220223
  9. DIPHENHYDRAMINE [Concomitant]
     Active Substance: DIPHENHYDRAMINE
     Dosage: UNK
     Dates: start: 20220202, end: 20220223
  10. OLANZAPINE [Concomitant]
     Active Substance: OLANZAPINE
     Dosage: UNK
     Dates: start: 20220202, end: 20220223
  11. PALONOSETRON [Concomitant]
     Active Substance: PALONOSETRON
     Dosage: UNK
     Dates: start: 20220202, end: 20220223
  12. PEGFILGRASTIM [Concomitant]
     Active Substance: PEGFILGRASTIM
     Dosage: UNK
     Dates: start: 20220202, end: 20220223
  13. ONDANSETRON [Concomitant]
     Active Substance: ONDANSETRON
     Indication: Nausea
     Dosage: UNK
     Dates: start: 20220206, end: 202202
  14. ACETAMINOPHEN [Concomitant]
     Active Substance: ACETAMINOPHEN
     Indication: Pyrexia
     Dosage: UNK
     Dates: start: 20220217
  15. IBUPROFEN\PSEUDOEPHEDRINE HYDROCHLORIDE [Concomitant]
     Active Substance: IBUPROFEN\PSEUDOEPHEDRINE HYDROCHLORIDE
     Indication: Rhinitis allergic
     Dosage: UNK
     Dates: start: 20220221
  16. LISDEXAMFETAMINE [Concomitant]
     Active Substance: LISDEXAMFETAMINE
     Indication: Disturbance in attention
     Dosage: UNK
     Dates: start: 202101
  17. FOLIC ACID [Concomitant]
     Active Substance: FOLIC ACID
     Dosage: UNK
     Route: 048
  18. MAGNESIUM [Concomitant]
     Active Substance: MAGNESIUM
     Dosage: UNK
     Route: 048

REACTIONS (48)
  - Muscular weakness [Unknown]
  - Condition aggravated [Unknown]
  - Wheelchair user [Unknown]
  - Metastases to spine [Unknown]
  - Hyperdynamic left ventricle [Unknown]
  - Hydronephrosis [Unknown]
  - CSF lymphocyte count increased [Unknown]
  - CSF protein increased [Unknown]
  - Albumin CSF increased [Unknown]
  - CSF immunoglobulin increased [Unknown]
  - Guillain-Barre syndrome [Recovered/Resolved]
  - Hyperbilirubinaemia [Unknown]
  - Pericardial effusion [Unknown]
  - Hypokalaemia [Unknown]
  - Pneumonia [Unknown]
  - Thrombocytopenia [Unknown]
  - Dyspnoea exertional [Unknown]
  - Oxygen saturation decreased [Recovering/Resolving]
  - Ecchymosis [Unknown]
  - Gait disturbance [Unknown]
  - White blood cell count decreased [Unknown]
  - Haematocrit decreased [Unknown]
  - Blood chloride decreased [Unknown]
  - Brain natriuretic peptide increased [Unknown]
  - Blood lactate dehydrogenase increased [Unknown]
  - Haptoglobin increased [Unknown]
  - Sinus tachycardia [Recovered/Resolved]
  - Total lung capacity decreased [Unknown]
  - Large intestine infection [Recovered/Resolved]
  - Staphylococcus test positive [Unknown]
  - Atelectasis [Unknown]
  - Lung disorder [Unknown]
  - Pituitary enlargement [Unknown]
  - Blood chromogranin A increased [Unknown]
  - CSF monocyte count decreased [Unknown]
  - Hyperreflexia [Recovered/Resolved]
  - Mucosal inflammation [Unknown]
  - Hypophosphataemia [Unknown]
  - Pleural effusion [Unknown]
  - Hypomagnesaemia [Unknown]
  - Aspartate aminotransferase increased [Unknown]
  - Alanine aminotransferase increased [Unknown]
  - Blood alkaline phosphatase increased [Unknown]
  - Platelet count decreased [Unknown]
  - Hyponatraemia [Recovering/Resolving]
  - Anaemia [Recovering/Resolving]
  - Hypoaesthesia [Unknown]
  - Diarrhoea [Unknown]

NARRATIVE: CASE EVENT DATE: 20220227
